FAERS Safety Report 6960651-7 (Version None)
Quarter: 2010Q3

REPORT INFORMATION
  Report Type: 
  Country: None (occurrence: None)
  Receive Date: 20100901
  Receipt Date: 20100823
  Transmission Date: 20110219
  Serious: Yes (Disabling)
  Sender: FDA-Public Use
  Company Number: AU-PFIZER INC-2010106632

PATIENT
  Age: 50 Year
  Sex: Male
  Weight: 88 kg

DRUGS (9)
  1. CHAMPIX [Suspect]
     Dosage: UNK
  2. EFFEXOR [Concomitant]
     Indication: DEPRESSION
     Dosage: 75 MG, UNK
  3. EFFEXOR [Concomitant]
     Indication: ANXIETY
  4. DIAZEPAM [Concomitant]
     Indication: DEPRESSION
     Dosage: 5 MG, 3X/DAY
  5. DIAZEPAM [Concomitant]
     Indication: ANXIETY
  6. ACETYLSALICYLIC ACID/CLOPIDOGREL [Concomitant]
     Indication: ANTIPLATELET THERAPY
  7. ROSUVASTATIN [Concomitant]
  8. RABEPRAZOLE [Concomitant]
  9. LEVOTHYROXINE SODIUM [Concomitant]
     Dosage: 50 UG, UNK

REACTIONS (3)
  - ANGER [None]
  - MOOD SWINGS [None]
  - SOMNOLENCE [None]
